FAERS Safety Report 10023803 (Version 5)
Quarter: 2014Q2

REPORT INFORMATION
  Report Type: Spontaneous
  Country: JP (occurrence: JP)
  Receive Date: 20140320
  Receipt Date: 20140429
  Transmission Date: 20141212
  Serious: Yes (Death)
  Sender: FDA-Public Use
  Company Number: JP-JNJFOC-20140309660

PATIENT
  Sex: Male
  Weight: 73 kg

DRUGS (7)
  1. XEPLION [Suspect]
     Indication: SCHIZOPHRENIA
     Route: 030
     Dates: start: 20140203, end: 20140203
  2. XEPLION [Suspect]
     Indication: SCHIZOPHRENIA
     Route: 030
     Dates: start: 20140127, end: 20140127
  3. HALOMONTH [Suspect]
     Indication: SCHIZOPHRENIA
     Route: 030
     Dates: start: 20140127, end: 20140127
  4. ZYPREXA [Concomitant]
     Dosage: (BEFORE BED TIME)
     Route: 048
  5. LONASEN [Concomitant]
     Route: 048
  6. LAMICTAL [Concomitant]
     Route: 048
  7. LITHIUM CARBONATE [Concomitant]
     Dosage: 400 MG/200 MG/400 MG
     Route: 048

REACTIONS (2)
  - Respiratory failure [Fatal]
  - Overdose [Fatal]
